FAERS Safety Report 17004786 (Version 3)
Quarter: 2019Q4

REPORT INFORMATION
  Report Type: Spontaneous
  Country: JP (occurrence: JP)
  Receive Date: 20191107
  Receipt Date: 20191227
  Transmission Date: 20200122
  Serious: Yes (Life-Threatening, Hospitalization, Disabling)
  Sender: FDA-Public Use
  Company Number: JP-ANIPHARMA-2019-JP-000208

PATIENT
  Age: 90 Year
  Sex: Male
  Weight: 58 kg

DRUGS (12)
  1. BETANIS [Concomitant]
     Active Substance: MIRABEGRON
     Dosage: 50 MG DAILY
     Route: 048
     Dates: start: 20190617, end: 20190817
  2. BETAHISTINE MESILATE [Concomitant]
     Active Substance: BETAHISTINE MESILATE
     Dosage: 6 MG TID
     Route: 048
     Dates: start: 20180812
  3. URIEF [Concomitant]
     Active Substance: SILODOSIN
     Dosage: 4 MG BID
     Route: 048
     Dates: start: 20180801, end: 20190817
  4. LIVALO [Concomitant]
     Active Substance: PITAVASTATIN CALCIUM
     Dosage: 1 MG DAILY
     Route: 048
     Dates: start: 20180801
  5. CILOSTAZOL. [Concomitant]
     Active Substance: CILOSTAZOL
     Dosage: 100 MG BID
     Route: 048
     Dates: start: 20180926, end: 20190817
  6. AMLODIPINE BESILATE [Concomitant]
     Active Substance: AMLODIPINE BESYLATE
     Dosage: 5 MG DAILY
     Route: 048
     Dates: start: 20180801
  7. AVOLVE [Concomitant]
     Active Substance: DUTASTERIDE
     Dosage: 0.5 MG DAILY
     Route: 048
     Dates: start: 20170801, end: 20190817
  8. CASODEX [Suspect]
     Active Substance: BICALUTAMIDE
     Indication: PROSTATE CANCER
     Dosage: 1 DF QD / 80 MG QD
     Route: 048
     Dates: start: 20190617
  9. ZOLADEX [Suspect]
     Active Substance: GOSERELIN ACETATE
     Dosage: 3.6 MG Q4WK
     Route: 058
     Dates: start: 20190520, end: 20190817
  10. ANTICOAGULANT CIT PHOS DEX ADENINE [Concomitant]
     Active Substance: CITRIC ACID MONOHYDRATE\DEXTROSE\SODIUM CITRATE\SODIUM PHOSPHATE, MONOBASIC
     Dosage: UNKNOWN
     Route: 065
  11. BAYASPIRIN [Suspect]
     Active Substance: ASPIRIN
     Dosage: 100MG DAILY
     Dates: start: 20180801, end: 20190817
  12. LANSOPRAZOLE (NON-SPECIFIC) [Concomitant]
     Active Substance: LANSOPRAZOLE
     Dosage: 15 MG DAILY
     Dates: start: 20180801

REACTIONS (5)
  - Abdominal wall haematoma [Recovering/Resolving]
  - Cerebral infarction [Recovered/Resolved with Sequelae]
  - Monoplegia [Not Recovered/Not Resolved]
  - Chronic myeloid leukaemia [Recovering/Resolving]
  - Arterial injury [Unknown]

NARRATIVE: CASE EVENT DATE: 20190805
